FAERS Safety Report 7194442-1 (Version None)
Quarter: 2010Q4

REPORT INFORMATION
  Report Type: 
  Country: None (occurrence: None)
  Receive Date: 20101223
  Receipt Date: 20101214
  Transmission Date: 20110411
  Serious: Yes (Hospitalization)
  Sender: FDA-Public Use
  Company Number: US-ASTRAZENECA-2010SE59080

PATIENT
  Age: 77 Year
  Sex: Female
  Weight: 72.6 kg

DRUGS (7)
  1. CRESTOR [Suspect]
     Indication: HYPERCHOLESTEROLAEMIA
     Route: 048
  2. FISH OIL [Concomitant]
  3. GLUCOSAMINE [Concomitant]
  4. AMITRIPTYLINE HCL [Concomitant]
  5. ATENOLOL [Concomitant]
  6. ASPIRIN [Concomitant]
  7. MULTI-VITAMIN [Concomitant]

REACTIONS (6)
  - ARTHRITIS [None]
  - DIZZINESS [None]
  - MUSCULOSKELETAL STIFFNESS [None]
  - NAUSEA [None]
  - PAIN [None]
  - VOMITING [None]
